FAERS Safety Report 4759641-4 (Version None)
Quarter: 2005Q3

REPORT INFORMATION
  Report Type: 
  Country: None (occurrence: None)
  Receive Date: 20050831
  Receipt Date: 20050824
  Transmission Date: 20060218
  Serious: Yes (Other)
  Sender: FDA-Public Use
  Company Number: 215737

PATIENT
  Age: 54 Year
  Sex: Female

DRUGS (5)
  1. XOLAIR [Suspect]
     Dosage: 1/MONTH,
     Dates: start: 20041201
  2. ALBUTEROL (ALBUTEROL, ALBUTEROL SULFATE) [Concomitant]
  3. PULMICORT [Concomitant]
  4. IPRATROPIUM BROMIDE [Concomitant]
  5. SINGULAIR [Concomitant]

REACTIONS (4)
  - ASTHMA [None]
  - BLOOD PRESSURE INCREASED [None]
  - CONDITION AGGRAVATED [None]
  - HEART RATE INCREASED [None]
